FAERS Safety Report 4382403-7 (Version None)
Quarter: 2004Q2

REPORT INFORMATION
  Report Type: 
  Country: None (occurrence: None)
  Receive Date: 20040617
  Receipt Date: 20040607
  Transmission Date: 20050107
  Serious: Yes (Death)
  Sender: FDA-Public Use
  Company Number: 2004JP000638

PATIENT
  Age: 39 Year
  Sex: Male
  Weight: 65.5 kg

DRUGS (6)
  1. PROGRAF [Suspect]
     Indication: RENAL TRANSPLANT
     Dosage: 3.00 MG, ORAL
     Route: 048
     Dates: start: 19990711, end: 20040209
  2. CELLCEPT [Suspect]
     Dosage: 3.00 G,
     Dates: start: 20000304, end: 20040129
  3. PREDNISOLONE [Suspect]
     Dosage: 8.00 MG,
     Dates: start: 19990713, end: 20040130
  4. BLOPRESS (CANDESARTAN CILEXETIL) [Concomitant]
  5. NORVASC [Concomitant]
  6. KOLANTYL (DICYCLOVERINE HYDROCHLORIDE, MAGNESIUM OXIDE, METHYLCELLULOS [Concomitant]

REACTIONS (7)
  - BRAIN DEATH [None]
  - BRAIN HERNIATION [None]
  - DECREASED APPETITE [None]
  - LEUKOENCEPHALOPATHY [None]
  - ROAD TRAFFIC ACCIDENT [None]
  - VIRAL INFECTION [None]
  - VOMITING [None]
